FAERS Safety Report 21388257 (Version 1)
Quarter: 2022Q3

REPORT INFORMATION
  Report Type: Spontaneous
  Country: SK (occurrence: SK)
  Receive Date: 20220928
  Receipt Date: 20220928
  Transmission Date: 20221027
  Serious: Yes (Death, Other)
  Sender: FDA-Public Use
  Company Number: SK-PFIZER INC-PV202200071819

PATIENT
  Age: 51 Year
  Sex: Female

DRUGS (1)
  1. TALZENNA [Suspect]
     Active Substance: TALAZOPARIB TOSYLATE
     Indication: Triple negative breast cancer
     Dosage: UNK
     Dates: start: 20220801, end: 20220830

REACTIONS (4)
  - Acute hepatic failure [Fatal]
  - Thrombocytopenia [Unknown]
  - Liver function test abnormal [Unknown]
  - Ascites [Unknown]

NARRATIVE: CASE EVENT DATE: 20220911
